FAERS Safety Report 10739601 (Version 4)
Quarter: 2015Q2

REPORT INFORMATION
  Report Type: Report from Study
  Country: US (occurrence: US)
  Receive Date: 20150126
  Receipt Date: 20150626
  Transmission Date: 20150821
  Serious: Yes (Other)
  Sender: FDA-Public Use
  Company Number: US-GILEAD-2015-0133593

PATIENT
  Age: 66 Year
  Sex: Male

DRUGS (4)
  1. AMBRISENTAN [Suspect]
     Active Substance: AMBRISENTAN
     Indication: PULMONARY HYPERTENSION
     Dosage: 5 MG, QD
     Route: 065
     Dates: start: 20141117
  2. AMBRISENTAN [Suspect]
     Active Substance: AMBRISENTAN
     Indication: HIV INFECTION
     Dosage: 10 MG,QD
     Route: 065
  3. AMBRISENTAN [Suspect]
     Active Substance: AMBRISENTAN
     Indication: PULMONARY HYPERTENSION
  4. WARFARIN [Concomitant]
     Active Substance: WARFARIN

REACTIONS (10)
  - Cough [Unknown]
  - Skin ulcer [Unknown]
  - Dermatitis bullous [Not Recovered/Not Resolved]
  - Pruritus [Recovering/Resolving]
  - Skin exfoliation [Unknown]
  - Ear pruritus [Recovering/Resolving]
  - Pruritus [Unknown]
  - Rash [Unknown]
  - Nasopharyngitis [Unknown]
  - Scab [Unknown]

NARRATIVE: CASE EVENT DATE: 201412
